FAERS Safety Report 25153004 (Version 1)
Quarter: 2025Q2

REPORT INFORMATION
  Report Type: Spontaneous
  Country: US (occurrence: US)
  Receive Date: 20250403
  Receipt Date: 20250403
  Transmission Date: 20250716
  Serious: No
  Sender: ALEXION PHARMACEUTICALS
  Company Number: US-AstraZeneca-CH-00833058AP

PATIENT
  Age: 74 Year

DRUGS (2)
  1. WAINUA [Suspect]
     Active Substance: EPLONTERSEN
     Route: 065
  2. WAINUA [Suspect]
     Active Substance: EPLONTERSEN
     Route: 065

REACTIONS (5)
  - Drug dose omission by device [Unknown]
  - Injury associated with device [Unknown]
  - Incorrect dose administered by device [Unknown]
  - Needle issue [Unknown]
  - Device malfunction [Unknown]
